FAERS Safety Report 18246888 (Version 2)
Quarter: 2020Q3

REPORT INFORMATION
  Report Type: Spontaneous
  Country: FR (occurrence: FR)
  Receive Date: 20200909
  Receipt Date: 20200916
  Transmission Date: 20201103
  Serious: Yes (Other)
  Sender: FDA-Public Use
  Company Number: FR-GLAXOSMITHKLINE-FR2020176682

PATIENT
  Sex: Male

DRUGS (7)
  1. ALPRAZOLAM. [Suspect]
     Active Substance: ALPRAZOLAM
     Indication: DRUG ABUSE
     Dosage: UNSPECIFIED
     Route: 065
  2. BROMAZEPAM [Suspect]
     Active Substance: BROMAZEPAM
     Indication: DRUG ABUSE
     Dosage: UNSPECIFIED
     Route: 065
  3. IZALGI [Suspect]
     Active Substance: ACETAMINOPHEN\OPIUM
     Indication: DRUG ABUSE
     Dosage: UNSPECIFIED
     Route: 065
  4. HAVLANE [Suspect]
     Active Substance: LOPRAZOLAM
     Indication: DRUG ABUSE
     Dosage: UNSPECIFIED
     Route: 065
  5. NICOTINE. [Suspect]
     Active Substance: NICOTINE
     Indication: DRUG ABUSE
     Dosage: UNSPECIFIED
     Route: 065
  6. VERATRAN [Suspect]
     Active Substance: CLOTIAZEPAM
     Indication: DRUG ABUSE
     Dosage: UNSPECIFIED
     Route: 065
  7. DAFALGAN CODEINE [Suspect]
     Active Substance: ACETAMINOPHEN\CODEINE PHOSPHATE
     Indication: DRUG ABUSE
     Dosage: UNSPECIFIED
     Route: 065

REACTIONS (1)
  - Drug abuse [Not Recovered/Not Resolved]
